FAERS Safety Report 11969940 (Version 1)
Quarter: 2016Q1

REPORT INFORMATION
  Report Type: Spontaneous
  Country: US (occurrence: None)
  Receive Date: 20160126
  Receipt Date: 20160126
  Transmission Date: 20160526
  Serious: Yes (Life-Threatening)
  Sender: FDA-Public Use
  Company Number: None

PATIENT
  Age: 52 Year
  Sex: Male

DRUGS (1)
  1. BUPROPION XL [Suspect]
     Active Substance: BUPROPION
     Route: 048

REACTIONS (2)
  - Irritability [None]
  - Agitation [None]

NARRATIVE: CASE EVENT DATE: 20151113
